FAERS Safety Report 6935027-9 (Version None)
Quarter: 2010Q3

REPORT INFORMATION
  Report Type: 
  Country: None (occurrence: None)
  Receive Date: 20100822
  Receipt Date: 20100810
  Transmission Date: 20110219
  Serious: Yes (Hospitalization, Other)
  Sender: FDA-Public Use
  Company Number: PHHY2010BR53693

PATIENT
  Sex: Male

DRUGS (4)
  1. CODATEN [Suspect]
     Indication: PROCEDURAL PAIN
     Dosage: 50 MG, 1 TABLET EVERY 6 HOURS.
     Route: 048
  2. CODATEN [Suspect]
     Indication: RADICULAR PAIN
  3. HYDROCHLOROTHIAZIDE [Concomitant]
     Indication: HYPERTENSION
     Dosage: UNK
     Route: 048
  4. RIVOTRIL [Concomitant]
     Indication: SLEEP DISORDER
     Dosage: 2.5 MG/ML, 20 DROPS AT NIGHT
     Route: 048

REACTIONS (3)
  - MEMORY IMPAIRMENT [None]
  - SPINAL OPERATION [None]
  - WEIGHT DECREASED [None]
